FAERS Safety Report 5280407-3 (Version None)
Quarter: 2007Q1

REPORT INFORMATION
  Report Type: 
  Country: None (occurrence: None)
  Receive Date: 20061229
  Receipt Date: 20060802
  Transmission Date: 20070707
  Serious: Yes (Other)
  Sender: FDA-Public Use
  Company Number: 2006UW15512

PATIENT
  Age: 75 Year
  Sex: Male
  Weight: 74.842 kg

DRUGS (5)
  1. CRESTOR [Suspect]
     Indication: HYPERCHOLESTEROLAEMIA
     Dosage: 5 MG PO
     Route: 048
  2. CRESTOR [Suspect]
     Indication: HYPERCHOLESTEROLAEMIA
     Dosage: 10 MG PO
     Route: 048
  3. METFORMIN HCL [Concomitant]
  4. FOSINOPRIL SODIUM [Concomitant]
  5. GLYBURIDE [Concomitant]

REACTIONS (1)
  - GALLBLADDER DISORDER [None]
